FAERS Safety Report 5528282-3 (Version None)
Quarter: 2007Q4

REPORT INFORMATION
  Report Type: 
  Country: None (occurrence: None)
  Receive Date: 20071109
  Receipt Date: 20070226
  Transmission Date: 20080405
  Serious: Yes (Hospitalization)
  Sender: FDA-Public Use
  Company Number: PHEH2007US02471

PATIENT
  Age: 50 Year
  Sex: Female
  Weight: 81.2 kg

DRUGS (5)
  1. ESTRADERM [Suspect]
     Indication: HORMONE REPLACEMENT THERAPY
     Dosage: TRANSDERMAL
     Route: 062
  2. VIVELLE [Suspect]
     Indication: HORMONE REPLACEMENT THERAPY
     Dosage: 0.1 MG/DAY, TRANSDERMAL
     Route: 062
     Dates: start: 19970314
  3. PREMARIN [Suspect]
     Indication: HORMONE REPLACEMENT THERAPY
     Dosage: 0.625 MG, QD, ORAL
     Route: 048
     Dates: start: 19990101, end: 20020810
  4. PROVERA [Suspect]
     Indication: HORMONE REPLACEMENT THERAPY
     Dosage: 2.5 MG, QD
     Dates: start: 19990101, end: 20020810
  5. PREMPRO [Suspect]
     Indication: HORMONE REPLACEMENT THERAPY
     Dates: start: 19990101, end: 20020810

REACTIONS (5)
  - BACK PAIN [None]
  - DEEP VEIN THROMBOSIS [None]
  - OEDEMA PERIPHERAL [None]
  - PAIN IN EXTREMITY [None]
  - ULTRASOUND DOPPLER ABNORMAL [None]
